FAERS Safety Report 16122377 (Version 1)
Quarter: 2019Q2

REPORT INFORMATION
  Report Type: Spontaneous
  Country: US (occurrence: US)
  Receive Date: 20190326
  Receipt Date: 20190326
  Transmission Date: 20190711
  Serious: Yes (Disabling)
  Sender: FDA-Public Use
  Company Number: None

PATIENT
  Age: 41 Year
  Sex: Female
  Weight: 85.5 kg

DRUGS (9)
  1. VITAMIN D NOS [Concomitant]
     Active Substance: VITAMIN D NOS
  2. FOLIC ACID. [Concomitant]
     Active Substance: FOLIC ACID
  3. OMEGA-3 ACIDS [Concomitant]
     Active Substance: OMEGA-3 FATTY ACIDS
  4. DIAXONAL [Concomitant]
  5. PROBIOTIC [Concomitant]
     Active Substance: PROBIOTICS NOS
  6. ZOLOFT [Suspect]
     Active Substance: SERTRALINE HYDROCHLORIDE
     Indication: PANIC DISORDER
     Dosage: ?          QUANTITY:2 TABLET(S);?
     Route: 048
     Dates: start: 20010706
  7. ANTI-OXIDENT [Concomitant]
  8. RECLIPSEN [Concomitant]
     Active Substance: DESOGESTREL\ETHINYL ESTRADIOL
  9. VITAMIN B12 [Concomitant]
     Active Substance: CYANOCOBALAMIN

REACTIONS (4)
  - Dental caries [None]
  - Tooth loss [None]
  - Dry mouth [None]
  - Dysphagia [None]

NARRATIVE: CASE EVENT DATE: 20190301
